FAERS Safety Report 5695772-2 (Version None)
Quarter: 2008Q2

REPORT INFORMATION
  Report Type: 
  Country: None (occurrence: None)
  Receive Date: 20080404
  Receipt Date: 20080404
  Transmission Date: 20081010
  Serious: Yes (Hospitalization)
  Sender: FDA-Public Use
  Company Number: None

PATIENT
  Sex: Male
  Weight: 47.2 kg

DRUGS (6)
  1. CISPLATIN [Suspect]
     Dosage: 324 MG
     Dates: end: 20080204
  2. FENTANYL TRANSDERMAL SYSTEM [Concomitant]
  3. LISINOPRIL [Concomitant]
  4. PEPCID [Concomitant]
  5. SPS SOLUTION [Concomitant]
  6. SCOPOLAMINE [Concomitant]

REACTIONS (4)
  - BLOOD CREATININE INCREASED [None]
  - BLOOD POTASSIUM INCREASED [None]
  - BLOOD UREA INCREASED [None]
  - ORAL INTAKE REDUCED [None]
